FAERS Safety Report 11922598 (Version 4)
Quarter: 2018Q4

REPORT INFORMATION
  Report Type: Spontaneous
  Country: JP (occurrence: JP)
  Receive Date: 20160115
  Receipt Date: 20181218
  Transmission Date: 20190204
  Serious: Yes (Other)
  Sender: FDA-Public Use
  Company Number: JP-PFIZER INC-2015314003

PATIENT
  Age: 78 Year
  Sex: Female

DRUGS (13)
  1. ONETRAM [Suspect]
     Active Substance: TRAMADOL HYDROCHLORIDE
     Indication: PAIN
     Dosage: 100 MG, 1X/DAY
     Route: 048
     Dates: start: 20150622, end: 20150628
  2. ONETRAM [Suspect]
     Active Substance: TRAMADOL HYDROCHLORIDE
     Dosage: 200 MG, 1X/DAY
     Route: 048
     Dates: start: 20150629, end: 20150915
  3. TAKEPRON [Suspect]
     Active Substance: LANSOPRAZOLE
     Dosage: 15 MG, 2X/DAY
     Dates: start: 20141110
  4. LYRICA [Suspect]
     Active Substance: PREGABALIN
     Dosage: 75 MG, 2X/DAY
     Route: 048
     Dates: start: 20141127, end: 20141129
  5. PAXIL [Suspect]
     Active Substance: PAROXETINE HYDROCHLORIDE
     Dosage: 10 MG, 2X/DAY
     Dates: start: 20141216
  6. LENDORMIN [Suspect]
     Active Substance: BROTIZOLAM
     Dosage: 0.25 MG, 1X/DAY
     Dates: start: 20141216
  7. BAYASPIRIN [Suspect]
     Active Substance: ASPIRIN
     Dosage: 100 MG, 1X/DAY
     Dates: start: 20141110, end: 20141222
  8. LIPITOR [Suspect]
     Active Substance: ATORVASTATIN CALCIUM
     Dosage: 10 MG, 1X/DAY
     Dates: start: 20141110
  9. LUVOX [Suspect]
     Active Substance: FLUVOXAMINE MALEATE
     Dosage: 25 MG, 2X/DAY
     Dates: start: 20141126, end: 20141205
  10. SULPIRIDE [Suspect]
     Active Substance: SULPIRIDE
     Dosage: 50 MG, 3X/DAY
     Dates: start: 20150622
  11. PLAVIX [Suspect]
     Active Substance: CLOPIDOGREL BISULFATE
     Dosage: 75 MG, UNK
     Dates: start: 20141204
  12. DEPAS [Suspect]
     Active Substance: ETIZOLAM
     Dosage: 0.5 MG, 2X/DAY
     Dates: start: 20141216
  13. CALONAL [Suspect]
     Active Substance: ACETAMINOPHEN
     Dosage: 300 MG, 3X/DAY
     Dates: start: 20150629, end: 20151221

REACTIONS (1)
  - Liver function test abnormal [Not Recovered/Not Resolved]

NARRATIVE: CASE EVENT DATE: 20150911
